FAERS Safety Report 5721914-6 (Version None)
Quarter: 2008Q2

REPORT INFORMATION
  Report Type: 
  Country: None (occurrence: None)
  Receive Date: 20080429
  Receipt Date: 20080417
  Transmission Date: 20081010
  Serious: Yes (Other)
  Sender: FDA-Public Use
  Company Number: US-PFIZER INC-2008019257

PATIENT
  Sex: Female
  Weight: 55.79 kg

DRUGS (2)
  1. LYRICA [Suspect]
     Indication: CENTRAL PAIN SYNDROME
  2. BACLOFEN [Concomitant]

REACTIONS (2)
  - MYOCLONUS [None]
  - PAIN [None]
